FAERS Safety Report 8354169-7 (Version None)
Quarter: 2012Q2

REPORT INFORMATION
  Report Type: 
  Country: None (occurrence: None)
  Receive Date: 20120511
  Receipt Date: 20120505
  Transmission Date: 20120825
  Serious: Yes (Hospitalization, Other)
  Sender: FDA-Public Use
  Company Number: US-AMGEN-USASP2012024584

PATIENT
  Age: 63 Year
  Sex: Female

DRUGS (2)
  1. ENBREL [Suspect]
     Indication: RHEUMATOID ARTHRITIS
     Dosage: 50 MG, QWK
     Dates: start: 20100329, end: 20120101
  2. ENBREL [Suspect]
     Indication: SJOGREN'S SYNDROME

REACTIONS (2)
  - RHEUMATOID ARTHRITIS [None]
  - LUNG CANCER METASTATIC [None]
